FAERS Safety Report 10896267 (Version 1)
Quarter: 2015Q1

REPORT INFORMATION
  Report Type: Spontaneous
  Country: US (occurrence: None)
  Receive Date: 20150302
  Receipt Date: 20150302
  Transmission Date: 20150721
  Serious: Yes (Disabling)
  Sender: FDA-Public Use
  Company Number: None

PATIENT
  Age: 29 Year
  Sex: Male
  Weight: 77.11 kg

DRUGS (1)
  1. CIPROFLOXACIN. [Suspect]
     Active Substance: CIPROFLOXACIN
     Indication: PROSTATITIS
     Dosage: 2, TWICE DAILY, TAKEN BY MOUTH
     Route: 048
     Dates: start: 20150105, end: 20150107

REACTIONS (3)
  - Arthralgia [None]
  - Joint crepitation [None]
  - Visual acuity reduced [None]

NARRATIVE: CASE EVENT DATE: 20150107
